FAERS Safety Report 16195433 (Version 1)
Quarter: 2019Q2

REPORT INFORMATION
  Report Type: Spontaneous
  Country: FR (occurrence: FR)
  Receive Date: 20190415
  Receipt Date: 20190415
  Transmission Date: 20190711
  Serious: Yes (Hospitalization)
  Sender: FDA-Public Use
  Company Number: FR-TEVA-2019-FR-1038932

PATIENT
  Age: 60 Year
  Sex: Female

DRUGS (6)
  1. OXYBUTYNIN. [Suspect]
     Active Substance: OXYBUTYNIN CHLORIDE
     Indication: MULTIPLE SCLEROSIS
     Route: 065
  2. BACLOFEN. [Interacting]
     Active Substance: BACLOFEN
     Indication: MULTIPLE SCLEROSIS
     Dosage: DOSE REDUCED TO 30MG PER DAY
     Route: 065
  3. FAMPRIDINE [Interacting]
     Active Substance: DALFAMPRIDINE
     Indication: MULTIPLE SCLEROSIS
     Route: 065
     Dates: start: 2013
  4. BIOTIN [Interacting]
     Active Substance: BIOTIN
     Indication: MULTIPLE SCLEROSIS
     Dosage: 100 MG THREE TIMES PER DAY
     Route: 048
     Dates: start: 2016
  5. BIOTIN [Interacting]
     Active Substance: BIOTIN
     Indication: MULTIPLE SCLEROSIS
     Dosage: 100 MG THREE TIMES PER DAY
     Route: 048
     Dates: start: 2016
  6. NITROFURANTOIN. [Concomitant]
     Active Substance: NITROFURANTOIN
     Indication: MULTIPLE SCLEROSIS
     Route: 065

REACTIONS (3)
  - Potentiating drug interaction [Unknown]
  - Status epilepticus [Recovering/Resolving]
  - Off label use [Unknown]
